FAERS Safety Report 10584860 (Version 2)
Quarter: 2015Q1

REPORT INFORMATION
  Report Type: Spontaneous
  Country: US (occurrence: None)
  Receive Date: 20141113
  Receipt Date: 20150126
  Transmission Date: 20150720
  Serious: Yes (Other)
  Sender: FDA-Public Use
  Company Number: US2014018626

PATIENT
  Age: 64 Year
  Sex: Male

DRUGS (4)
  1. MEDICATION UNKNOWN (MEDICATION UNKNOWN) [Concomitant]
  2. TUMS ULTRA [Suspect]
     Active Substance: CALCIUM CARBONATE
     Indication: HICCUPS
     Route: 048
  3. CLINDAMYCIN [Concomitant]
     Active Substance: CLINDAMYCIN\CLINDAMYCIN PHOSPHATE
  4. TUMS [Suspect]
     Active Substance: CALCIUM CARBONATE
     Indication: HICCUPS
     Route: 048

REACTIONS (4)
  - Haematochezia [None]
  - Drug administration error [None]
  - Incorrect dose administered [None]
  - Intentional product misuse [None]

NARRATIVE: CASE EVENT DATE: 201411
